FAERS Safety Report 18103137 (Version 1)
Quarter: 2020Q3

REPORT INFORMATION
  Report Type: Spontaneous
  Country: DE (occurrence: DE)
  Receive Date: 20200803
  Receipt Date: 20200803
  Transmission Date: 20201103
  Serious: Yes (Hospitalization)
  Sender: FDA-Public Use
  Company Number: NVSC2020DE214716

PATIENT
  Age: 16 Year
  Sex: Female

DRUGS (2)
  1. RISPERIDON [Concomitant]
     Active Substance: RISPERIDONE
     Indication: PERSONALITY DISORDER
     Dosage: UNK
     Route: 048
  2. IBUPROFEN. [Suspect]
     Active Substance: IBUPROFEN
     Indication: SUICIDAL IDEATION
     Dosage: 10 DF, QD (DAILY DOSE: 10 DF DOSAGE FORM EVERY DAYS)
     Route: 048
     Dates: start: 20190422

REACTIONS (3)
  - General physical health deterioration [Unknown]
  - Medication error [Unknown]
  - Intentional overdose [Unknown]

NARRATIVE: CASE EVENT DATE: 20190422
